FAERS Safety Report 25659724 (Version 2)
Quarter: 2025Q4

REPORT INFORMATION
  Report Type: Report from Study
  Country: US (occurrence: US)
  Receive Date: 20250808
  Receipt Date: 20251008
  Transmission Date: 20260117
  Serious: Yes (Death, Other)
  Sender: JOHNSON AND JOHNSON
  Company Number: US-JNJFOC-20250804103

PATIENT
  Age: 84 Year
  Sex: Female

DRUGS (2)
  1. CILTACABTAGENE AUTOLEUCEL [Suspect]
     Active Substance: CILTACABTAGENE AUTOLEUCEL
     Indication: Plasma cell myeloma
     Dosage: ENTIRE VOLUME OF PRODUCT WAS INFUSED. TOTAL NUMBER OF CELLS ADMINISTERED WERE 3.1. TOTAL CELL EXPONE
     Route: 065
     Dates: start: 2023, end: 2023
  2. CILTACABTAGENE AUTOLEUCEL [Suspect]
     Active Substance: CILTACABTAGENE AUTOLEUCEL
     Indication: Plasma cell disorder

REACTIONS (2)
  - Squamous cell carcinoma of skin [Fatal]
  - Neoplasm malignant [Fatal]
